FAERS Safety Report 25792312 (Version 1)
Quarter: 2025Q3

REPORT INFORMATION
  Report Type: Spontaneous
  Country: EU (occurrence: EU)
  Receive Date: 20250911
  Receipt Date: 20250911
  Transmission Date: 20251021
  Serious: Yes (Other)
  Sender: PFIZER
  Company Number: EU-ORGANON-O2508PRT001894

PATIENT
  Age: 23 Year
  Sex: Female

DRUGS (2)
  1. FLUCONAZOLE [Interacting]
     Active Substance: FLUCONAZOLE
     Indication: Candida infection
     Route: 065
  2. ETONOGESTREL [Interacting]
     Active Substance: ETONOGESTREL
     Route: 058
     Dates: start: 20250508

REACTIONS (5)
  - Drug interaction [Unknown]
  - Weight increased [Not Recovered/Not Resolved]
  - Vaginal discharge [Not Recovered/Not Resolved]
  - Vulvovaginal discomfort [Not Recovered/Not Resolved]
  - Vaginal odour [Not Recovered/Not Resolved]

NARRATIVE: CASE EVENT DATE: 20250101
